FAERS Safety Report 6385305-X (Version None)
Quarter: 2009Q4

REPORT INFORMATION
  Report Type: 
  Country: None (occurrence: None)
  Receive Date: 20091002
  Receipt Date: 20080806
  Transmission Date: 20100525
  Serious: No
  Sender: FDA-Public Use
  Company Number: US-ASTRAZENECA-2008UW16124

PATIENT
  Age: 63 Year
  Sex: Female
  Weight: 90.7 kg

DRUGS (5)
  1. ARIMIDEX [Suspect]
     Indication: BREAST CANCER FEMALE
     Route: 048
     Dates: start: 20080601
  2. HIGH BP MEDICATION [Concomitant]
  3. THYROID MEDICATION [Concomitant]
  4. ANTIDEPRESSION MEDICATION [Concomitant]
  5. BLOOD THINNERS [Concomitant]

REACTIONS (5)
  - ARTHRALGIA [None]
  - DEPRESSION [None]
  - HAIR GROWTH ABNORMAL [None]
  - INSOMNIA [None]
  - THROMBOSIS [None]
